FAERS Safety Report 4414121-0 (Version None)
Quarter: 2004Q3

REPORT INFORMATION
  Report Type: 
  Country: None (occurrence: None)
  Receive Date: 20040728
  Receipt Date: 20040714
  Transmission Date: 20050211
  Serious: Yes (Life-Threatening, Hospitalization)
  Sender: FDA-Public Use
  Company Number: 2003AP01231

PATIENT
  Age: 84 Year
  Sex: Male

DRUGS (1)
  1. IRESSA [Suspect]
     Indication: NON-SMALL CELL LUNG CANCER
     Dosage: 250 MG DAILY PO
     Route: 048
     Dates: start: 20021008, end: 20021016

REACTIONS (8)
  - ANOREXIA [None]
  - BLISTER [None]
  - C-REACTIVE PROTEIN INCREASED [None]
  - CRACKLES LUNG [None]
  - DIARRHOEA [None]
  - HERPES ZOSTER [None]
  - RASH [None]
  - VOMITING [None]
